FAERS Safety Report 13677849 (Version 1)
Quarter: 2017Q2

REPORT INFORMATION
  Report Type: Spontaneous
  Country: US (occurrence: US)
  Receive Date: 20170622
  Receipt Date: 20170622
  Transmission Date: 20170830
  Serious: No
  Sender: FDA-Public Use
  Company Number: US-ELI_LILLY_AND_COMPANY-US201706008970

PATIENT
  Sex: Male
  Weight: 113.4 kg

DRUGS (6)
  1. LYRICA [Suspect]
     Active Substance: PREGABALIN
     Indication: NERVE INJURY
     Dosage: 50 MG, UNK
     Route: 048
     Dates: start: 2006
  2. CLOPIDOGREL [Concomitant]
     Active Substance: CLOPIDOGREL BISULFATE
     Indication: BLOOD PRESSURE ABNORMAL
     Dosage: 75 MG, DAILY
     Route: 048
  3. CARVEDIOL [Concomitant]
     Active Substance: CARVEDILOL
     Indication: FLUID IMBALANCE
     Dosage: 12.25 MG, UNK
     Route: 048
  4. METOLAZONE. [Concomitant]
     Active Substance: METOLAZONE
     Indication: BLOOD PRESSURE ABNORMAL
     Dosage: 5 MG, UNK
     Route: 048
  5. PROZAC [Suspect]
     Active Substance: FLUOXETINE HYDROCHLORIDE
     Indication: DEPRESSION
     Dosage: 40 MG, UNKNOWN
     Route: 048
     Dates: start: 2009
  6. BUMETANIDE. [Concomitant]
     Active Substance: BUMETANIDE
     Indication: FLUID IMBALANCE
     Dosage: 2 MG, UNK
     Route: 048

REACTIONS (2)
  - Memory impairment [Unknown]
  - Wrong technique in product usage process [Not Recovered/Not Resolved]
